FAERS Safety Report 5781973-1 (Version None)
Quarter: 2008Q2

REPORT INFORMATION
  Report Type: 
  Country: None (occurrence: None)
  Receive Date: 20080623
  Receipt Date: 20080206
  Transmission Date: 20081010
  Serious: No
  Sender: FDA-Public Use
  Company Number: US-ASTRAZENECA-2008UW02505

PATIENT
  Age: 74 Year
  Sex: Female
  Weight: 53.5 kg

DRUGS (4)
  1. RHINOCORT [Suspect]
     Indication: NASAL DISORDER
     Dosage: 2 SPRAYS PER NOSTRIL
     Route: 045
  2. THYROID TAB [Concomitant]
  3. ZETIA [Concomitant]
  4. ACTONEL [Concomitant]

REACTIONS (4)
  - AGITATION [None]
  - MUSCULOSKELETAL PAIN [None]
  - NECK PAIN [None]
  - SINUS HEADACHE [None]
